FAERS Safety Report 11260600 (Version 1)
Quarter: 2015Q3

REPORT INFORMATION
  Report Type: Spontaneous
  Country: US (occurrence: US)
  Receive Date: 20150710
  Receipt Date: 20150710
  Transmission Date: 20151125
  Serious: No
  Sender: FDA-Public Use
  Company Number: US-PURDUE-USA-2014-0119738

PATIENT
  Sex: Female

DRUGS (4)
  1. BUTRANS [Suspect]
     Active Substance: BUPRENORPHINE
     Indication: CARPAL TUNNEL SYNDROME
  2. BUTRANS [Suspect]
     Active Substance: BUPRENORPHINE
     Indication: ARTHRITIS
  3. BUTRANS [Suspect]
     Active Substance: BUPRENORPHINE
     Indication: ARTHRALGIA
     Dosage: 20 MCG/HR, WEEKLY
     Route: 062
     Dates: start: 20141004
  4. BUTRANS [Suspect]
     Active Substance: BUPRENORPHINE
     Indication: ARTHRALGIA

REACTIONS (5)
  - Application site discharge [Unknown]
  - Application site vesicles [Not Recovered/Not Resolved]
  - Application site pain [Not Recovered/Not Resolved]
  - Product adhesion issue [Unknown]
  - Inappropriate schedule of drug administration [Unknown]
